FAERS Safety Report 25040779 (Version 1)
Quarter: 2025Q1

REPORT INFORMATION
  Report Type: Spontaneous
  Country: US (occurrence: None)
  Receive Date: 20250305
  Receipt Date: 20250305
  Transmission Date: 20250409
  Serious: Yes (Hospitalization)
  Sender: FDA-CTU
  Company Number: None

PATIENT
  Age: 62 Year
  Sex: Female
  Weight: 74.6 kg

DRUGS (3)
  1. DARATUMUMAB [Suspect]
     Active Substance: DARATUMUMAB
  2. DEXAMETHASONE [Suspect]
     Active Substance: DEXAMETHASONE
  3. LENALIDOMIDE [Suspect]
     Active Substance: LENALIDOMIDE

REACTIONS (7)
  - Dizziness [None]
  - Palpitations [None]
  - Nausea [None]
  - Dyspnoea [None]
  - Chest pain [None]
  - Oedema peripheral [None]
  - Ventricular extrasystoles [None]

NARRATIVE: CASE EVENT DATE: 20200818
